FAERS Safety Report 7599717-X (Version None)
Quarter: 2011Q2

REPORT INFORMATION
  Report Type: 
  Country: None (occurrence: None)
  Receive Date: 20110629
  Receipt Date: 20110614
  Transmission Date: 20111010
  Serious: No
  Sender: FDA-Public Use
  Company Number: TCI2011A03533

PATIENT
  Age: 86 Year
  Sex: Male

DRUGS (13)
  1. ACTOS [Suspect]
     Indication: TYPE 2 DIABETES MELLITUS
     Dosage: 15 MG (15 MG, 1 D)
     Route: 048
     Dates: start: 20050101
  2. AMLODIPINE BESYLATE [Concomitant]
  3. ASPIRIN [Concomitant]
  4. MARZULENE (SODIUM GUALENATE) [Concomitant]
  5. ADOAIR (FLUTICASONE PROPIONATE, SALMETEROL XINAFOATE) [Concomitant]
  6. LIVALO (ITAVASTATIN CALCIUM) [Concomitant]
  7. D ALFA (ALFACALCIDOL0 [Concomitant]
  8. TAMSULOSIN HYDROCHLORIDE [Concomitant]
  9. ANTUP TAPE (ISOSORBIDE DINITRATE) [Concomitant]
  10. ALTAT (ROXATIDINE ACETATE HYDROCHLORIDE) [Concomitant]
  11. NATEGLINIDE [Concomitant]
  12. ALLOPURINOL [Concomitant]
  13. MAGNESIUM OXIDE [Concomitant]

REACTIONS (1)
  - BLADDER CANCER [None]
